FAERS Safety Report 9183765 (Version 1)
Quarter: 2013Q1

REPORT INFORMATION
  Report Type: Spontaneous
  Country: US (occurrence: US)
  Receive Date: 20130322
  Receipt Date: 20130322
  Transmission Date: 20140127
  Serious: No
  Sender: FDA-Public Use
  Company Number: US-TARO-2012P1049798

PATIENT
  Age: 55 Year
  Sex: Female
  Weight: 40.82 kg

DRUGS (3)
  1. NYSTATIN [Suspect]
     Route: 048
     Dates: start: 20120713
  2. CARAFATE [Suspect]
  3. ROXICET [Concomitant]

REACTIONS (2)
  - Vomiting [Not Recovered/Not Resolved]
  - Malaise [Unknown]
